FAERS Safety Report 18992279 (Version 1)
Quarter: 2021Q1

REPORT INFORMATION
  Report Type: Spontaneous
  Country: US (occurrence: US)
  Receive Date: 20210310
  Receipt Date: 20210310
  Transmission Date: 20210420
  Serious: Yes (Disabling)
  Sender: FDA-Public Use
  Company Number: None

PATIENT
  Age: 62 Year
  Sex: Male
  Weight: 85.5 kg

DRUGS (2)
  1. MULTIVITAMIN [Concomitant]
     Active Substance: VITAMINS
  2. VALACYCLOVIR HCL 500 MG TABLET [Suspect]
     Active Substance: VALACYCLOVIR HYDROCHLORIDE
     Indication: HERPES SIMPLEX
     Route: 048
     Dates: start: 20190607, end: 20201012

REACTIONS (17)
  - Agitation [None]
  - Herpes simplex [None]
  - Dysphagia [None]
  - Nerve compression [None]
  - Tongue movement disturbance [None]
  - Hiccups [None]
  - Therapy interrupted [None]
  - Inappropriate affect [None]
  - Muscular weakness [None]
  - Crying [None]
  - Choking [None]
  - Rash pruritic [None]
  - Speech disorder [None]
  - Muscle twitching [None]
  - Chills [None]
  - Dysphonia [None]
  - Yawning [None]

NARRATIVE: CASE EVENT DATE: 20201012
